FAERS Safety Report 18563195 (Version 3)
Quarter: 2022Q1

REPORT INFORMATION
  Report Type: Spontaneous
  Country: IT (occurrence: IT)
  Receive Date: 20201201
  Receipt Date: 20220215
  Transmission Date: 20220423
  Serious: Yes (Hospitalization, Other)
  Sender: FDA-Public Use
  Company Number: IT-GT-20201964

PATIENT
  Age: 81 Year
  Sex: Male

DRUGS (7)
  1. ALENDRONIC ACID [Suspect]
     Active Substance: ALENDRONIC ACID
     Indication: Osteopenia
     Dosage: UNK
     Route: 048
  2. ALENDRONIC ACID [Suspect]
     Active Substance: ALENDRONIC ACID
     Indication: Spinal compression fracture
  3. ZOMETA [Suspect]
     Active Substance: ZOLEDRONIC ACID
     Indication: Prostate cancer
     Dosage: 1 DOSAGE FORM EVERY MONTH
     Route: 042
  4. COUMADIN [Concomitant]
     Active Substance: WARFARIN SODIUM
     Indication: Product used for unknown indication
     Dosage: UNK
     Route: 048
  5. ENANTONE LP [Concomitant]
     Active Substance: LEUPROLIDE ACETATE
     Indication: Product used for unknown indication
     Dosage: 1 DOSAGE FORM EVERY MONTH
     Route: 030
  6. MEDROL [Concomitant]
     Active Substance: METHYLPREDNISOLONE
     Indication: Product used for unknown indication
     Dosage: 4 MILLIGRAM
     Route: 048
  7. METHADONE HYDROCHLORIDE [Concomitant]
     Active Substance: METHADONE HYDROCHLORIDE
     Indication: Product used for unknown indication
     Dosage: 5 MILLIGRAM, ONCE A DAY
     Route: 048

REACTIONS (8)
  - Osteonecrosis of jaw [Recovering/Resolving]
  - Osteonecrosis [Recovering/Resolving]
  - Osteomyelitis [Recovering/Resolving]
  - Exposed bone in jaw [Recovering/Resolving]
  - Pain in jaw [Recovering/Resolving]
  - Bone abscess [Recovering/Resolving]
  - Pain [Recovering/Resolving]
  - Off label use [Recovering/Resolving]
